FAERS Safety Report 5054667-8 (Version None)
Quarter: 2006Q3

REPORT INFORMATION
  Report Type: 
  Country: None (occurrence: None)
  Receive Date: 20060719
  Receipt Date: 20060712
  Transmission Date: 20061208
  Serious: Yes (Hospitalization)
  Sender: FDA-Public Use
  Company Number: PHHO2006CL11335

PATIENT
  Age: 18 Year
  Sex: Female

DRUGS (2)
  1. ZELMAC / HTF 919A [Suspect]
     Indication: ABDOMINAL PAIN UPPER
     Dosage: 6 MG, QD
     Route: 048
  2. SALBUTAMOL [Concomitant]

REACTIONS (1)
  - GALLBLADDER OPERATION [None]
